FAERS Safety Report 11191120 (Version 3)
Quarter: 2015Q2

REPORT INFORMATION
  Report Type: Report from Study
  Country: DE (occurrence: DE)
  Receive Date: 20150615
  Receipt Date: 20150623
  Transmission Date: 20150821
  Serious: Yes (Life-Threatening, Hospitalization)
  Sender: FDA-Public Use
  Company Number: DE-B.I. PHARMACEUTICALS,INC./RIDGEFIELD-2015-BI-03791DE

PATIENT
  Age: 74 Year
  Sex: Female
  Weight: 49 kg

DRUGS (2)
  1. GILOTRIF [Suspect]
     Active Substance: AFATINIB
     Indication: NON-SMALL CELL LUNG CANCER
     Dosage: 40 MG
     Route: 048
     Dates: start: 20141015
  2. UREA. [Concomitant]
     Active Substance: UREA
     Indication: ADVERSE EVENT
     Dosage: OINTMENT
     Route: 062
     Dates: start: 20141105

REACTIONS (5)
  - Dermatitis acneiform [Not Recovered/Not Resolved]
  - Skin disorder [Recovered/Resolved]
  - Diarrhoea [Recovered/Resolved]
  - Depression [Recovered/Resolved]
  - Depression [Recovered/Resolved]

NARRATIVE: CASE EVENT DATE: 20141205
